FAERS Safety Report 7930655-6 (Version None)
Quarter: 2011Q4

REPORT INFORMATION
  Report Type: 
  Country: None (occurrence: None)
  Receive Date: 20111121
  Receipt Date: 20110824
  Transmission Date: 20120403
  Serious: No
  Sender: FDA-Public Use
  Company Number: US-BAYER-2011-080944

PATIENT
  Sex: Female

DRUGS (3)
  1. ALEVE (CAPLET) [Suspect]
     Indication: ORAL PAIN
  2. ALEVE (CAPLET) [Suspect]
     Indication: HEADACHE
  3. ANTIBIOTICS [Concomitant]

REACTIONS (2)
  - ORAL PAIN [None]
  - HEADACHE [None]
